FAERS Safety Report 18723184 (Version 1)
Quarter: 2021Q1

REPORT INFORMATION
  Report Type: Spontaneous
  Country: US (occurrence: US)
  Receive Date: 20210107
  Receipt Date: 20210107
  Transmission Date: 20210419
  Serious: No
  Sender: FDA-Public Use
  Company Number: None

PATIENT
  Age: 55 Year
  Sex: Male

DRUGS (1)
  1. CELECOXIB (CELECOXIB 200MG CAP) [Suspect]
     Active Substance: CELECOXIB
     Indication: PAIN
     Route: 048
     Dates: start: 20190611, end: 20190925

REACTIONS (1)
  - Acute kidney injury [None]

NARRATIVE: CASE EVENT DATE: 20190925
